FAERS Safety Report 6076328-9 (Version None)
Quarter: 2009Q1

REPORT INFORMATION
  Report Type: 
  Country: None (occurrence: None)
  Receive Date: 20090212
  Receipt Date: 20090202
  Transmission Date: 20090719
  Serious: Yes (Other)
  Sender: FDA-Public Use
  Company Number: FR-GILEAD-2009-0020112

PATIENT
  Sex: Male

DRUGS (9)
  1. VIREAD [Suspect]
     Indication: ACQUIRED IMMUNODEFICIENCY SYNDROME
     Route: 048
     Dates: start: 20060801, end: 20080908
  2. NORVIR [Concomitant]
     Indication: ACQUIRED IMMUNODEFICIENCY SYNDROME
     Route: 048
     Dates: start: 20060801, end: 20080908
  3. ABACAVIR SULFATE/LAMIVUDINE [Concomitant]
     Indication: ACQUIRED IMMUNODEFICIENCY SYNDROME
     Route: 048
     Dates: start: 20061129, end: 20080908
  4. ISENTRESS [Concomitant]
     Route: 048
     Dates: start: 20070726, end: 20080908
  5. PREZISTA [Concomitant]
     Indication: ACQUIRED IMMUNODEFICIENCY SYNDROME
     Route: 048
     Dates: start: 20060801, end: 20080908
  6. RIVOTRIL [Concomitant]
  7. PRAZEPAM [Concomitant]
  8. IMODIUM [Concomitant]
  9. ALUMINUM HYDROXIDE AND MAGNESIUM TRISILICATE [Concomitant]

REACTIONS (4)
  - DRUG TOXICITY [None]
  - GLOMERULONEPHRITIS [None]
  - RENAL FAILURE [None]
  - RENAL TUBULAR DISORDER [None]
